FAERS Safety Report 24299212 (Version 1)
Quarter: 2024Q3

REPORT INFORMATION
  Report Type: Report from Study
  Country: DE (occurrence: DE)
  Receive Date: 20240909
  Receipt Date: 20240909
  Transmission Date: 20241017
  Serious: Yes (Hospitalization)
  Sender: MYLAN
  Company Number: DE-002147023-NVSC2022DE283991

PATIENT
  Sex: Female

DRUGS (3)
  1. CELECOXIB [Suspect]
     Active Substance: CELECOXIB
     Indication: Product used for unknown indication
     Dosage: 200 MILLIGRAM, 2 DAYS PER WEEK
     Route: 065
     Dates: start: 20221014
  2. BIMZELX [Suspect]
     Active Substance: BIMEKIZUMAB-BKZX
     Indication: Product used for unknown indication
     Dosage: 160 MILLIGRAM, Q28D (160 MG, Q4W)
     Route: 065
     Dates: start: 20240314
  3. ERELZI [Suspect]
     Active Substance: ETANERCEPT-SZZS
     Indication: Axial spondyloarthritis
     Dosage: 50 UNK, QW
     Route: 065
     Dates: start: 20221011, end: 20240219

REACTIONS (5)
  - Osteoarthritis [Not Recovered/Not Resolved]
  - Immunisation reaction [Unknown]
  - Injection site erythema [Unknown]
  - Localised infection [Unknown]
  - COVID-19 [Unknown]

NARRATIVE: CASE EVENT DATE: 20240307
